FAERS Safety Report 23408326 (Version 1)
Quarter: 2024Q1

REPORT INFORMATION
  Report Type: Spontaneous
  Country: CA (occurrence: None)
  Receive Date: 20240117
  Receipt Date: 20240117
  Transmission Date: 20240410
  Serious: Yes (Death, Hospitalization, Other)
  Sender: FDA-Public Use
  Company Number: 2024A010786

PATIENT
  Age: 73 Year
  Sex: Female

DRUGS (1)
  1. FULVESTRANT [Suspect]
     Active Substance: FULVESTRANT
     Indication: Oestrogen receptor assay positive
     Dosage: 250.0MG UNKNOWN
     Route: 030

REACTIONS (2)
  - Death [Fatal]
  - Hospitalisation [Fatal]
